FAERS Safety Report 12668888 (Version 1)
Quarter: 2016Q3

REPORT INFORMATION
  Report Type: Spontaneous
  Country: CN (occurrence: CN)
  Receive Date: 20160819
  Receipt Date: 20160819
  Transmission Date: 20161109
  Serious: Yes (Other)
  Sender: FDA-Public Use
  Company Number: CN-PFIZER INC-2016388320

PATIENT
  Age: 75 Year
  Sex: Male
  Weight: 76 kg

DRUGS (4)
  1. FUROSEMIDE. [Suspect]
     Active Substance: FUROSEMIDE
     Indication: POLYURIA
     Dosage: 20 MG, DAILY
     Route: 042
     Dates: start: 20160623, end: 20160623
  2. LIPITOR [Suspect]
     Active Substance: ATORVASTATIN CALCIUM
     Indication: ANGIOPATHY
     Dosage: 20 MG, DAILY
     Route: 048
     Dates: start: 20160623, end: 20160629
  3. SPIRONOLACTONE. [Suspect]
     Active Substance: SPIRONOLACTONE
     Indication: POLYURIA
     Dosage: 20 MG, DAILY
     Route: 048
     Dates: start: 20160623, end: 20160629
  4. TORASEMIDE [Suspect]
     Active Substance: TORSEMIDE
     Indication: POLYURIA
     Dosage: 20 MG, 2X/DAY
     Route: 042
     Dates: start: 20160624

REACTIONS (1)
  - Renal impairment [Recovering/Resolving]

NARRATIVE: CASE EVENT DATE: 20160625
